FAERS Safety Report 9549327 (Version 1)
Quarter: 2013Q3

REPORT INFORMATION
  Report Type: Spontaneous
  Country: IT (occurrence: IT)
  Receive Date: 20130924
  Receipt Date: 20130924
  Transmission Date: 20140515
  Serious: Yes (Hospitalization)
  Sender: FDA-Public Use
  Company Number: IT-PFIZER INC-2013268551

PATIENT
  Age: 51 Year
  Sex: Female

DRUGS (3)
  1. METHYLPREDNISOLONE [Suspect]
     Indication: IMMUNOSUPPRESSANT DRUG THERAPY
     Dosage: 4 MG/DAY
  2. MYCOPHENOLATE MOFETIL [Suspect]
     Indication: IMMUNOSUPPRESSANT DRUG THERAPY
     Dosage: 1 G/ DAY
  3. CYCLOSPORIN A [Suspect]
     Indication: IMMUNOSUPPRESSANT DRUG THERAPY
     Dosage: 60+60 MG/DAY

REACTIONS (1)
  - Hairy cell leukaemia [Recovered/Resolved]
